FAERS Safety Report 7372346-9 (Version None)
Quarter: 2011Q1

REPORT INFORMATION
  Report Type: 
  Country: None (occurrence: None)
  Receive Date: 20110324
  Receipt Date: 20110316
  Transmission Date: 20110831
  Serious: Yes (Other)
  Sender: FDA-Public Use
  Company Number: B0707539A

PATIENT
  Age: 65 Year
  Sex: Female

DRUGS (1)
  1. SERETIDE [Suspect]
     Route: 055
     Dates: start: 20110315, end: 20110315

REACTIONS (2)
  - ASTHMA [None]
  - PRODUCT QUALITY ISSUE [None]
